FAERS Safety Report 23351197 (Version 2)
Quarter: 2024Q2

REPORT INFORMATION
  Report Type: Report from Study
  Country: US (occurrence: US)
  Receive Date: 20231229
  Receipt Date: 20240404
  Transmission Date: 20240716
  Serious: Yes (Other)
  Sender: FDA-Public Use
  Company Number: US-BAUSCH-BL-2023-011958

PATIENT
  Age: 59 Year
  Sex: Female

DRUGS (1)
  1. SILIQ [Suspect]
     Active Substance: BRODALUMAB
     Indication: Psoriasis
     Dosage: INJECT 210 MG SUBCUTANEOUSLY AT WEEKS 0, 1 AND 2 AS DIRECTED
     Route: 058
     Dates: start: 202307

REACTIONS (8)
  - Psoriatic arthropathy [Not Recovered/Not Resolved]
  - Colonic abscess [Unknown]
  - Rectal abscess [Unknown]
  - Arthropathy [Unknown]
  - Psoriasis [Not Recovered/Not Resolved]
  - Loss of personal independence in daily activities [Not Recovered/Not Resolved]
  - Conjunctivitis [Not Recovered/Not Resolved]
  - Therapy interrupted [Unknown]

NARRATIVE: CASE EVENT DATE: 20230101
